FAERS Safety Report 9543256 (Version 1)
Quarter: 2013Q3

REPORT INFORMATION
  Report Type: Spontaneous
  Country: US (occurrence: US)
  Receive Date: 20130923
  Receipt Date: 20130923
  Transmission Date: 20140515
  Serious: Yes (Other)
  Sender: FDA-Public Use
  Company Number: US-PFIZER INC-2013271463

PATIENT
  Age: 47 Year
  Sex: Female
  Weight: 72.6 kg

DRUGS (2)
  1. PRISTIQ [Suspect]
     Indication: DEPRESSION
     Dosage: 100 MG, 1X/DAY
     Route: 048
     Dates: start: 2012
  2. PROPRANOLOL [Concomitant]
     Indication: ANXIETY
     Dosage: 10 MG, AS NEEDED

REACTIONS (4)
  - Urinary retention [Not Recovered/Not Resolved]
  - Bladder discomfort [Not Recovered/Not Resolved]
  - Dysuria [Not Recovered/Not Resolved]
  - Bladder disorder [Not Recovered/Not Resolved]
